FAERS Safety Report 23672498 (Version 1)
Quarter: 2024Q1

REPORT INFORMATION
  Report Type: Spontaneous
  Country: DE (occurrence: DE)
  Receive Date: 20240326
  Receipt Date: 20240326
  Transmission Date: 20240410
  Serious: Yes (Hospitalization)
  Sender: FDA-Public Use
  Company Number: None

PATIENT
  Age: 48 Year
  Sex: Female

DRUGS (10)
  1. ARIPIPRAZOLE [Suspect]
     Active Substance: ARIPIPRAZOLE
     Indication: Product used for unknown indication
     Route: 065
     Dates: end: 20170117
  2. VALPROATE [Suspect]
     Active Substance: VALPROIC ACID
     Indication: Product used for unknown indication
     Dosage: 1500 MG, QD
     Route: 048
     Dates: start: 20060101, end: 20170120
  3. VALPROATE [Suspect]
     Active Substance: VALPROIC ACID
     Route: 048
     Dates: start: 20170121, end: 20170203
  4. VALPROATE [Suspect]
     Active Substance: VALPROIC ACID
     Dosage: 1750 MG, QD
     Route: 048
     Dates: start: 20170203
  5. QUETIAPINE [Suspect]
     Active Substance: QUETIAPINE
     Indication: Product used for unknown indication
     Dosage: 450 MG, QD
     Route: 048
     Dates: end: 20170117
  6. QUETIAPINE [Suspect]
     Active Substance: QUETIAPINE
     Route: 048
     Dates: start: 20170118, end: 20170122
  7. QUETIAPINE [Suspect]
     Active Substance: QUETIAPINE
     Route: 048
     Dates: start: 20170123, end: 20170125
  8. QUETIAPINE [Suspect]
     Active Substance: QUETIAPINE
     Route: 048
     Dates: start: 20170126, end: 20170204
  9. QUETIAPINE [Suspect]
     Active Substance: QUETIAPINE
     Route: 048
     Dates: start: 20170205, end: 20170212
  10. CARBAMAZEPINE [Concomitant]
     Active Substance: CARBAMAZEPINE
     Indication: Product used for unknown indication

REACTIONS (4)
  - Hospitalisation [Recovered/Resolved]
  - Sleep disorder [Unknown]
  - Initial insomnia [Unknown]
  - Underdose [Unknown]

NARRATIVE: CASE EVENT DATE: 20170105
